FAERS Safety Report 22113733 (Version 1)
Quarter: 2023Q1

REPORT INFORMATION
  Report Type: Other
  Country: MY (occurrence: MY)
  Receive Date: 20230320
  Receipt Date: 20230320
  Transmission Date: 20230418
  Serious: Yes (Life-Threatening)
  Sender: FDA-Public Use
  Company Number: MY-NEBO-PC010202

PATIENT
  Age: 74 Year
  Sex: Female

DRUGS (1)
  1. IRON ISOMALTOSIDE 1000 [Suspect]
     Active Substance: IRON ISOMALTOSIDE 1000
     Indication: Iron deficiency anaemia
     Route: 050
     Dates: start: 20221226, end: 20221226

REACTIONS (3)
  - Loss of consciousness [Recovered/Resolved]
  - Pulse absent [Recovered/Resolved]
  - Vomiting [Recovered/Resolved]

NARRATIVE: CASE EVENT DATE: 20221226
